FAERS Safety Report 7558441-X (Version None)
Quarter: 2011Q2

REPORT INFORMATION
  Report Type: 
  Country: None (occurrence: None)
  Receive Date: 20110620
  Receipt Date: 20110608
  Transmission Date: 20111010
  Serious: Yes (Hospitalization, Other)
  Sender: FDA-Public Use
  Company Number: US-ASTRAZENECA-2011SE34973

PATIENT
  Age: 60 Year
  Sex: Female
  Weight: 90.7 kg

DRUGS (4)
  1. POTASSIUM [Concomitant]
  2. VIMOVO [Suspect]
     Indication: PAIN
     Route: 048
     Dates: start: 20110501, end: 20110601
  3. LISINOPRIL [Concomitant]
  4. NORVASC [Concomitant]

REACTIONS (10)
  - MUSCULAR WEAKNESS [None]
  - FASCIITIS [None]
  - ABASIA [None]
  - DYSSTASIA [None]
  - MYALGIA [None]
  - RESTLESS LEGS SYNDROME [None]
  - JOINT SWELLING [None]
  - OEDEMA PERIPHERAL [None]
  - PAIN IN EXTREMITY [None]
  - TREMOR [None]
